FAERS Safety Report 24863368 (Version 1)
Quarter: 2025Q1

REPORT INFORMATION
  Report Type: Spontaneous
  Country: US (occurrence: US)
  Receive Date: 20250120
  Receipt Date: 20250120
  Transmission Date: 20250409
  Serious: No
  Sender: AMGEN
  Company Number: US-AMGEN-USASP2025008860

PATIENT
  Age: 30 Year
  Sex: Male

DRUGS (4)
  1. PREDNISONE [Suspect]
     Active Substance: PREDNISONE
     Indication: Lichen planus
     Route: 048
  2. NALTREXONE [Concomitant]
     Active Substance: NALTREXONE
     Indication: Lichen planus
     Dosage: 3 MILLIGRAM, QD (LOW DOSE)
     Route: 048
  3. ACITRETIN [Concomitant]
     Active Substance: ACITRETIN
     Indication: Lichen planus
  4. CYCLOSPORINE [Concomitant]
     Active Substance: CYCLOSPORINE
     Indication: Lichen planus

REACTIONS (2)
  - Lichen planus [Unknown]
  - Off label use [Unknown]
